FAERS Safety Report 6496399-5 (Version None)
Quarter: 2009Q4

REPORT INFORMATION
  Report Type: 
  Country: None (occurrence: None)
  Receive Date: 20091214
  Receipt Date: 20091130
  Transmission Date: 20100525
  Serious: Yes (Hospitalization, Other)
  Sender: FDA-Public Use
  Company Number: AU-MYLANLABS-2009S1020698

PATIENT
  Age: 41 Year
  Sex: Female

DRUGS (1)
  1. LOVAN [Suspect]
     Indication: DEPRESSION
     Route: 048
     Dates: start: 20081101

REACTIONS (5)
  - CONTUSION [None]
  - EPISTAXIS [None]
  - FLUID RETENTION [None]
  - GINGIVAL BLEEDING [None]
  - PLATELET COUNT DECREASED [None]
